FAERS Safety Report 5383203-1 (Version None)
Quarter: 2007Q3

REPORT INFORMATION
  Report Type: 
  Country: None (occurrence: None)
  Receive Date: 20070710
  Receipt Date: 20070628
  Transmission Date: 20080115
  Serious: Yes (Other)
  Sender: FDA-Public Use
  Company Number: IN-PFIZER INC-2007053963

PATIENT
  Age: 18 Year
  Sex: Male

DRUGS (1)
  1. DALACIN [Suspect]
     Route: 042
     Dates: start: 20070628, end: 20070628

REACTIONS (3)
  - INJECTION SITE DISCOLOURATION [None]
  - INJECTION SITE ERYTHEMA [None]
  - PILONIDAL CYST [None]
